FAERS Safety Report 8144744-7 (Version None)
Quarter: 2012Q1

REPORT INFORMATION
  Report Type: 
  Country: None (occurrence: None)
  Receive Date: 20120214
  Receipt Date: 20120130
  Transmission Date: 20120608
  Serious: Yes (Hospitalization)
  Sender: FDA-Public Use
  Company Number: AMAG201200024

PATIENT
  Age: 78 Year
  Sex: Female

DRUGS (1)
  1. FERAHEME [Suspect]
     Dates: start: 20100427, end: 20100427

REACTIONS (2)
  - VOMITING [None]
  - NAUSEA [None]
